FAERS Safety Report 21369497 (Version 1)
Quarter: 2022Q3

REPORT INFORMATION
  Report Type: Spontaneous
  Country: FR (occurrence: FR)
  Receive Date: 20220923
  Receipt Date: 20220923
  Transmission Date: 20221027
  Serious: Yes (Hospitalization, Other)
  Sender: FDA-Public Use
  Company Number: FR-Accord-278666

PATIENT
  Age: 58 Year
  Sex: Female

DRUGS (11)
  1. TACROLIMUS [Interacting]
     Active Substance: TACROLIMUS
     Indication: Immunosuppression
     Dosage: 2 MG ONCE DAILY
  2. MYCOPHENOLATE MOFETIL [Suspect]
     Active Substance: MYCOPHENOLATE MOFETIL
     Indication: Immunosuppression
     Dosage: (720 MG TWICE A DAY) ON DAY 12 (12 H AFTER THE LAST DOSE OF NIRMATRELVIR/R)
  3. NIRMATRELVIR\RITONAVIR [Interacting]
     Active Substance: NIRMATRELVIR\RITONAVIR
     Indication: COVID-19
     Dosage: HALF DOSE OF NIRMATRELVIR (150 MG INSTEAD OF 300 MG), RITONAVIR 100 MG TWICE DAILY FOR 5 DAYS
  4. MYCOPHENOLATE MOFETIL [Concomitant]
     Active Substance: MYCOPHENOLATE MOFETIL
     Indication: Immunosuppression
     Dosage: 500 MG EVERY 12 H
  5. ISRADIPINE [Concomitant]
     Active Substance: ISRADIPINE
  6. IRBESARTAN [Concomitant]
     Active Substance: IRBESARTAN
  7. BISOPROLOL [Concomitant]
     Active Substance: BISOPROLOL
  8. ESOMEPRAZOLE [Concomitant]
     Active Substance: ESOMEPRAZOLE
  9. FUROSEMIDE [Concomitant]
     Active Substance: FUROSEMIDE
  10. MYCOPHENOLATE MOFETIL [Concomitant]
     Active Substance: MYCOPHENOLATE MOFETIL
     Indication: Immunosuppression
     Dosage: 720 MG EVERY 12 H
  11. TACROLIMUS [Interacting]
     Active Substance: TACROLIMUS
     Indication: Immunosuppression
     Dosage: 12 MG ONCE DAILY (12 H AFTER THE LAST DOSE OF?NIRMATRELVIR/R)

REACTIONS (8)
  - Chronic kidney disease [Unknown]
  - Toxicity to various agents [Unknown]
  - Acute kidney injury [Recovered/Resolved]
  - Drug interaction [Unknown]
  - Arthralgia [Unknown]
  - Asthenia [Unknown]
  - Diarrhoea [Unknown]
  - Drug level increased [Recovered/Resolved]
